FAERS Safety Report 11304443 (Version 1)
Quarter: 2015Q3

REPORT INFORMATION
  Report Type: Spontaneous
  Country: US (occurrence: US)
  Receive Date: 20150723
  Receipt Date: 20150723
  Transmission Date: 20151125
  Serious: No
  Sender: FDA-Public Use
  Company Number: US-JNJFOC-20150406827

PATIENT
  Age: 54 Year
  Sex: Female
  Weight: 81.65 kg

DRUGS (3)
  1. ZYRTEC [Suspect]
     Active Substance: CETIRIZINE HYDROCHLORIDE
     Indication: EYE PRURITUS
     Dosage: 1 TIME
     Route: 048
     Dates: start: 20150406, end: 20150406
  2. ZYRTEC [Suspect]
     Active Substance: CETIRIZINE HYDROCHLORIDE
     Indication: RHINORRHOEA
     Dosage: 1 TIME
     Route: 048
     Dates: start: 20150406, end: 20150406
  3. ZYRTEC [Suspect]
     Active Substance: CETIRIZINE HYDROCHLORIDE
     Indication: THROAT IRRITATION
     Dosage: 1 TIME
     Route: 048
     Dates: start: 20150406, end: 20150406

REACTIONS (1)
  - Drug ineffective [Unknown]
